FAERS Safety Report 19778861 (Version 2)
Quarter: 2021Q3

REPORT INFORMATION
  Report Type: Spontaneous
  Country: US (occurrence: US)
  Receive Date: 20210902
  Receipt Date: 20210921
  Transmission Date: 20211014
  Serious: Yes (Death, Life-Threatening, Hospitalization, Other)
  Sender: FDA-Public Use
  Company Number: US-ACCORD-236922

PATIENT
  Age: 69 Year
  Sex: Male

DRUGS (2)
  1. PREDNISONE. [Suspect]
     Active Substance: PREDNISONE
     Indication: IMMUNOSUPPRESSION
     Dosage: REDUCED TO 5 MG DAILY ON DAY 8
  2. MYCOPHENOLIC ACID. [Suspect]
     Active Substance: MYCOPHENOLIC ACID
     Indication: IMMUNOSUPPRESSION

REACTIONS (4)
  - Vasogenic cerebral oedema [Fatal]
  - Phaeohyphomycosis [Fatal]
  - Phaeohyphomycotic brain abscess [Fatal]
  - Respiratory failure [Fatal]

NARRATIVE: CASE EVENT DATE: 2020
